FAERS Safety Report 5790272-3 (Version None)
Quarter: 2008Q2

REPORT INFORMATION
  Report Type: 
  Country: None (occurrence: None)
  Receive Date: 20080626
  Receipt Date: 20080417
  Transmission Date: 20081010
  Serious: No
  Sender: FDA-Public Use
  Company Number: A0707392A

PATIENT
  Weight: 92.7 kg

DRUGS (1)
  1. ALLI [Suspect]
     Indication: DRUG USE FOR UNKNOWN INDICATION
     Route: 048

REACTIONS (13)
  - ANOREXIA [None]
  - DEHYDRATION [None]
  - DRUG INEFFECTIVE [None]
  - FLATULENCE [None]
  - FOOD CRAVING [None]
  - FREQUENT BOWEL MOVEMENTS [None]
  - GASTROINTESTINAL DISORDER [None]
  - MALAISE [None]
  - MUSCLE SPASMS [None]
  - PAIN IN EXTREMITY [None]
  - PYREXIA [None]
  - STEATORRHOEA [None]
  - WEIGHT INCREASED [None]
